FAERS Safety Report 7403265-7 (Version None)
Quarter: 2011Q2

REPORT INFORMATION
  Report Type: 
  Country: None (occurrence: None)
  Receive Date: 20110408
  Receipt Date: 20110405
  Transmission Date: 20111010
  Serious: Yes (Hospitalization)
  Sender: FDA-Public Use
  Company Number: US-JNJFOC-20100701099

PATIENT
  Age: 7 Year
  Sex: Female

DRUGS (4)
  1. CHILDREN'S BENADRYL ALLERGY DYE DRE LIQUID BUBBLEGUM [Suspect]
     Indication: PRODUCT USED FOR UNKNOWN INDICATION
     Route: 048
  2. CHILDREN'S TYLENOL SUSPENSION BUBBLEGUM [Suspect]
     Indication: PRODUCT USED FOR UNKNOWN INDICATION
     Route: 048
  3. CHILDREN'S BENADRYL ALLERGY DYE DRE LIQUID BUBBLEGUM [Suspect]
     Route: 048
  4. CHILDREN'S TYLENOL SUSPENSION BUBBLEGUM [Suspect]
     Route: 048

REACTIONS (2)
  - GASTROINTESTINAL ULCER [None]
  - PRODUCT QUALITY ISSUE [None]
